FAERS Safety Report 16853993 (Version 1)
Quarter: 2019Q3

REPORT INFORMATION
  Report Type: Spontaneous
  Country: US (occurrence: US)
  Receive Date: 20190926
  Receipt Date: 20190926
  Transmission Date: 20191005
  Serious: No
  Sender: FDA-Public Use
  Company Number: US-009507513-1909USA002906

PATIENT
  Age: 22 Year
  Sex: Male

DRUGS (1)
  1. KEYTRUDA [Suspect]
     Active Substance: PEMBROLIZUMAB
     Indication: NEUROFIBROSARCOMA
     Dosage: 200 MILLIGRAM, (OVER 30 MINUTES) EVERY 3 WEEKS
     Route: 042

REACTIONS (1)
  - Off label use [Unknown]
